FAERS Safety Report 9672369 (Version 2)
Quarter: 2014Q1

REPORT INFORMATION
  Report Type: Report from Study
  Country: AU (occurrence: AU)
  Receive Date: 20131106
  Receipt Date: 20140114
  Transmission Date: 20141002
  Serious: Yes (Other)
  Sender: FDA-Public Use
  Company Number: PHHY2013AU125837

PATIENT
  Age: 75 Year
  Sex: Female

DRUGS (14)
  1. ACLASTA [Suspect]
     Indication: OSTEOPOROSIS
     Dosage: 5 MG
     Route: 042
     Dates: start: 20121011
  2. BION TEARS [Concomitant]
     Dosage: 1 TO 2 DROPS IN AFFECTED EYE
  3. DERALIN [Concomitant]
     Dosage: 10 MG, BID
  4. DIPROSONE [Concomitant]
     Dosage: APPLIED TWICE DAILY AS REQUIRED
  5. ELOCON [Concomitant]
     Dosage: APPLY TO SCALP DAILY
  6. FRUSEMIDE [Concomitant]
     Dosage: 40 MG
  7. LIPITOR [Concomitant]
     Dosage: 10 MG, QD
  8. LOSEC [Concomitant]
     Dosage: 20 MG, QD
  9. MAREVAN [Concomitant]
     Dosage: 1 MG AS REQUIRED
  10. MAREVAN [Concomitant]
     Dosage: 3 MG, AS REQUIRED
  11. PANADOL OSTEO [Concomitant]
     Dosage: 665 MG, 1 TO 2 TABLETS 8 HOURLY
  12. PANAFCORTELONE [Concomitant]
     Dosage: 5 MG AS REQUIRED
  13. SANDRENA [Concomitant]
     Dosage: 1 DAILY RUB 1 SACHET IN DAILY TO LOWER 1/2 OF BODY
  14. SYMBICORT [Concomitant]
     Dosage: 2 CLICKS BD AND HRLY PRN (2 BREATHS PER CLICK)

REACTIONS (3)
  - Meningioma [Unknown]
  - Lower respiratory tract infection [Recovered/Resolved]
  - Seborrhoea [Unknown]
